FAERS Safety Report 8343030-X (Version None)
Quarter: 2012Q1

REPORT INFORMATION
  Report Type: 
  Country: None (occurrence: None)
  Receive Date: 20120330
  Receipt Date: 20010327
  Transmission Date: 20120608
  Serious: Yes (Hospitalization)
  Sender: FDA-Public Use
  Company Number: PHEH2001US02262

PATIENT
  Age: 77 Year
  Sex: Female

DRUGS (6)
  1. EXELON [Suspect]
     Dosage: 3 MG, BID, ORAL
     Route: 048
  2. POTASSIUM CHLORIDE [Concomitant]
  3. TRAZODONE HCL [Concomitant]
  4. PREMPRO (MEDROXYPROGESTERONE ACETATE, ESTROGENS C) [Concomitant]
  5. VITAMIN E [Concomitant]
  6. OXYBUTRIN [Concomitant]

REACTIONS (3)
  - CHEST PAIN [None]
  - MYOCARDIAL INFARCTION [None]
  - DYSPNOEA [None]
